FAERS Safety Report 19377702 (Version 1)
Quarter: 2021Q2

REPORT INFORMATION
  Report Type: Spontaneous
  Country: US (occurrence: US)
  Receive Date: 20210604
  Receipt Date: 20210604
  Transmission Date: 20210717
  Serious: No
  Sender: FDA-Public Use
  Company Number: US-REGENERON PHARMACEUTICALS, INC.-2021-28564

PATIENT

DRUGS (2)
  1. LIBTAYO [Suspect]
     Active Substance: CEMIPLIMAB-RWLC
     Indication: SKIN SQUAMOUS CELL CARCINOMA METASTATIC
     Dosage: FIRST INFUSION
     Dates: start: 2021, end: 2021
  2. LIBTAYO [Suspect]
     Active Substance: CEMIPLIMAB-RWLC
     Dosage: SECOND INFUSION
     Dates: start: 2021, end: 2021

REACTIONS (4)
  - Frequent bowel movements [Unknown]
  - Thirst [Unknown]
  - Hypertension [Unknown]
  - Skin neoplasm bleeding [Unknown]
